FAERS Safety Report 7751960-2 (Version None)
Quarter: 2011Q3

REPORT INFORMATION
  Report Type: 
  Country: None (occurrence: None)
  Receive Date: 20110915
  Receipt Date: 20110907
  Transmission Date: 20111222
  Serious: Yes (Hospitalization, Other)
  Sender: FDA-Public Use
  Company Number: FR-JNJFOC-20110805845

PATIENT
  Age: 52 Year
  Sex: Male
  Weight: 81 kg

DRUGS (4)
  1. REMICADE [Suspect]
     Indication: SPONDYLITIS
     Route: 042
     Dates: start: 20100602
  2. NEXIUM [Concomitant]
     Dosage: 40 MG QPM
     Route: 065
  3. REMICADE [Suspect]
     Dosage: 11TH INFUSION
     Route: 042
     Dates: start: 20110707
  4. ACETAMINOPHEN [Concomitant]
     Route: 065

REACTIONS (5)
  - PHOSPHENES [None]
  - INFUSION RELATED REACTION [None]
  - MALAISE [None]
  - ARTHROPOD BITE [None]
  - HYPERTENSION [None]
